FAERS Safety Report 13934898 (Version 1)
Quarter: 2017Q3

REPORT INFORMATION
  Report Type: Report from Study
  Country: None (occurrence: BR)
  Receive Date: 20170905
  Receipt Date: 20170905
  Transmission Date: 20171127
  Serious: Yes (Other)
  Sender: FDA-Public Use
  Company Number: BR-ABBVIE-17K-020-2064169-00

PATIENT
  Sex: Female
  Weight: 77 kg

DRUGS (1)
  1. HUMIRA [Suspect]
     Active Substance: ADALIMUMAB
     Indication: ANKYLOSING SPONDYLITIS
     Route: 058
     Dates: start: 20170330, end: 20170715

REACTIONS (8)
  - Back pain [Recovered/Resolved]
  - Bedridden [Recovered/Resolved]
  - Sinusitis [Recovered/Resolved]
  - Immunodeficiency [Recovered/Resolved]
  - Respiratory tract infection [Recovered/Resolved]
  - Painful respiration [Recovered/Resolved]
  - Dyspnoea [Recovered/Resolved]
  - Pneumonia [Recovered/Resolved]

NARRATIVE: CASE EVENT DATE: 2017
